FAERS Safety Report 9621876 (Version 2)
Quarter: 2013Q4

REPORT INFORMATION
  Report Type: Spontaneous
  Country: US (occurrence: US)
  Receive Date: 20131015
  Receipt Date: 20131126
  Transmission Date: 20140711
  Serious: Yes (Other)
  Sender: FDA-Public Use
  Company Number: US-PFIZER INC-2013291096

PATIENT
  Age: 42 Year
  Sex: Female
  Weight: 78 kg

DRUGS (5)
  1. XALKORI [Suspect]
     Indication: NON-SMALL CELL LUNG CANCER STAGE IV
     Dosage: 250 MG, 1X/DAY
     Route: 048
     Dates: start: 2012
  2. XALKORI [Suspect]
     Dosage: 500 MG, DAILY
     Route: 048
     Dates: start: 201208
  3. LABETALOL [Concomitant]
     Indication: HYPERTENSION
     Dosage: UNK
  4. METFORMIN [Concomitant]
     Indication: TYPE 2 DIABETES MELLITUS
     Dosage: 500 MG, 2X/DAY
  5. ZOLOFT [Concomitant]
     Indication: DEPRESSION
     Dosage: 50 MG, 1X/DAY

REACTIONS (2)
  - Renal haemorrhage [Unknown]
  - Renal haematoma [Recovering/Resolving]
